FAERS Safety Report 20321228 (Version 1)
Quarter: 2022Q1

REPORT INFORMATION
  Report Type: Spontaneous
  Country: US (occurrence: None)
  Receive Date: 20220110
  Receipt Date: 20220110
  Transmission Date: 20220424
  Serious: Yes (Death)
  Sender: FDA-Public Use
  Company Number: None

PATIENT
  Sex: Male

DRUGS (9)
  1. DOFETILIDE [Suspect]
     Active Substance: DOFETILIDE
     Indication: Lung carcinoma cell type unspecified stage 0
     Dosage: TAKE 1 CAPSULE BY MOUTH TWICE DAILY?
     Route: 048
     Dates: start: 20180327, end: 20220110
  2. ACIPHEX TAB [Concomitant]
  3. ALPRAZOLAM TAB [Concomitant]
  4. LASIX TAB [Concomitant]
  5. METOPROL TAR TAB [Concomitant]
  6. POT CHLORIDE TAB [Concomitant]
  7. SIMVASTATIN [Concomitant]
     Active Substance: SIMVASTATIN
  8. TIKOSYN CAP [Concomitant]
  9. WARFARIN TAB [Concomitant]

REACTIONS (1)
  - Death [None]
